FAERS Safety Report 24663774 (Version 1)
Quarter: 2024Q4

REPORT INFORMATION
  Report Type: Spontaneous
  Country: US (occurrence: US)
  Receive Date: 20241126
  Receipt Date: 20241126
  Transmission Date: 20250115
  Serious: No
  Sender: Kenvue
  Company Number: US-KENVUE-20241031471

PATIENT
  Age: 84 Year

DRUGS (1)
  1. TYLENOL 8 HR ARTHRITIS PAIN [Suspect]
     Active Substance: ACETAMINOPHEN
     Indication: Product used for unknown indication
     Dosage: TOOK 2 DOSAGE AND ACCIDENTALLY TOOK 2 MORE AN HOUR LATER
     Route: 065

REACTIONS (1)
  - Extra dose administered [Unknown]
